FAERS Safety Report 5245673-9 (Version None)
Quarter: 2007Q1

REPORT INFORMATION
  Report Type: 
  Country: None (occurrence: None)
  Receive Date: 20070223
  Receipt Date: 20070213
  Transmission Date: 20070707
  Serious: Yes (Other)
  Sender: FDA-Public Use
  Company Number: PFIZER INC-2007012114

PATIENT
  Sex: Female
  Weight: 49.9 kg

DRUGS (5)
  1. CHANTIX [Suspect]
     Indication: SMOKING CESSATION THERAPY
  2. SOMA [Suspect]
     Indication: INTERVERTEBRAL DISC PROTRUSION
  3. ACETYLSALICYLIC ACID SRT [Concomitant]
  4. LEVOTHYROXINE SODIUM [Concomitant]
  5. ORAL CONTRACEPTIVE NOS [Concomitant]

REACTIONS (4)
  - INTERVERTEBRAL DISC PROTRUSION [None]
  - NIGHTMARE [None]
  - SLEEP WALKING [None]
  - SOMNOLENCE [None]
